FAERS Safety Report 19280029 (Version 1)
Quarter: 2021Q2

REPORT INFORMATION
  Report Type: Spontaneous
  Country: US (occurrence: US)
  Receive Date: 20210520
  Receipt Date: 20210520
  Transmission Date: 20210717
  Serious: No
  Sender: FDA-Public Use
  Company Number: US-MYLANLABS-2021M1026801

PATIENT
  Sex: Female

DRUGS (1)
  1. ESTRADIOL VAGINAL CREAM USP [Suspect]
     Active Substance: ESTRADIOL
     Indication: BLADDER DISORDER
     Dosage: 3 TIMES WEEKLY
     Route: 067
     Dates: start: 20210424

REACTIONS (1)
  - Device difficult to use [Unknown]
